FAERS Safety Report 5134121-5 (Version None)
Quarter: 2006Q4

REPORT INFORMATION
  Report Type: 
  Country: None (occurrence: None)
  Receive Date: 20061024
  Receipt Date: 20061012
  Transmission Date: 20070319
  Serious: Yes (Death)
  Sender: FDA-Public Use
  Company Number: US-SANOFI-SYNTHELABO-A03200606233

PATIENT
  Sex: Male
  Weight: 99.77 kg

DRUGS (2)
  1. SIMVASTATIN [Concomitant]
     Dosage: UNK
     Route: 048
  2. PLAVIX [Suspect]
     Indication: HEART VALVE REPLACEMENT
     Route: 048
     Dates: start: 20040101

REACTIONS (2)
  - ACUTE MYOCARDIAL INFARCTION [None]
  - DRUG INEFFECTIVE [None]
